FAERS Safety Report 8910824 (Version 4)
Quarter: 2013Q3

REPORT INFORMATION
  Report Type: Spontaneous
  Country: US (occurrence: US)
  Receive Date: 20121115
  Receipt Date: 20130807
  Transmission Date: 20140515
  Serious: Yes (Hospitalization, Other)
  Sender: FDA-Public Use
  Company Number: US-009507513-1211USA004967

PATIENT
  Sex: Female
  Weight: 86.17 kg

DRUGS (2)
  1. NUVARING [Suspect]
     Indication: CONTRACEPTION
     Dosage: UNK
     Route: 067
     Dates: start: 201009, end: 201010
  2. NUVARING [Suspect]
     Indication: MENORRHAGIA

REACTIONS (9)
  - Pulmonary embolism [Unknown]
  - Pulmonary infarction [Unknown]
  - Off label use [Unknown]
  - Weight increased [Unknown]
  - Upper respiratory tract infection [Unknown]
  - Increased tendency to bruise [Unknown]
  - Pleurisy [Unknown]
  - Costochondritis [Unknown]
  - Musculoskeletal pain [Unknown]
